FAERS Safety Report 9226213 (Version 1)
Quarter: 2013Q2

REPORT INFORMATION
  Report Type: Report from Study
  Country: US (occurrence: US)
  Receive Date: 20130411
  Receipt Date: 20130411
  Transmission Date: 20140414
  Serious: Yes (Death, Hospitalization)
  Sender: FDA-Public Use
  Company Number: PHHO2013US004918

PATIENT
  Age: 57 Year
  Sex: Male
  Weight: 58.8 kg

DRUGS (10)
  1. LEUCOVORIN CALCIUM TABLETS [Suspect]
     Indication: BILE DUCT CANCER
     Dosage: 400 MG/M2, UNK
     Dates: start: 20130118, end: 20130315
  2. OXALIPLATIN [Suspect]
     Indication: NEOPLASM
     Dosage: 85 MG/M2, UNK
     Dates: start: 20130118, end: 20130315
  3. FLUOROURACIL [Suspect]
     Indication: BILE DUCT CANCER
     Dosage: 400 MG/M2, UNK
     Dates: start: 20130118, end: 20130315
  4. BKM120 [Suspect]
     Indication: BILE DUCT CANCER
     Dosage: 40 MG, QD
     Dates: start: 20130118, end: 20130321
  5. LOVENOX [Concomitant]
     Indication: PROPHYLAXIS
     Dosage: 50 MG, UNK
     Dates: start: 20130118
  6. ONDANSETRON [Concomitant]
     Indication: NAUSEA
     Dosage: 4 MG, UNK
     Dates: start: 20130118
  7. PANTOPRAZOL [Concomitant]
     Indication: GASTROOESOPHAGEAL REFLUX DISEASE
     Dosage: 40 MG, UNK
  8. PROCHLORPERAZINE [Concomitant]
     Indication: NAUSEA
     Dosage: 10 MG, UNK
     Dates: start: 20130118
  9. LOMOTIL [Concomitant]
     Indication: DIARRHOEA
     Dosage: 2.5 MG, UNK
     Dates: start: 20130201
  10. KCL [Concomitant]
     Indication: HYPOKALAEMIA
     Dosage: 40 MEQ, UNK
     Dates: start: 20130315

REACTIONS (3)
  - Pneumonia [Fatal]
  - Sepsis syndrome [Fatal]
  - Neutropenia [Fatal]
